FAERS Safety Report 14731220 (Version 2)
Quarter: 2018Q2

REPORT INFORMATION
  Report Type: Report from Study
  Country: BE (occurrence: BE)
  Receive Date: 20180406
  Receipt Date: 20180618
  Transmission Date: 20180711
  Serious: Yes (Life-Threatening, Hospitalization, Other)
  Sender: FDA-Public Use
  Company Number: BE-BRISTOL-MYERS SQUIBB COMPANY-BMS-2018-031009

PATIENT
  Sex: Male

DRUGS (1)
  1. NIVOLUMAB [Suspect]
     Active Substance: NIVOLUMAB
     Indication: NON-SMALL CELL LUNG CANCER
     Dosage: 1 DF, Q2WK
     Route: 065
     Dates: start: 2015

REACTIONS (4)
  - Enterocolitis haemorrhagic [Recovered/Resolved]
  - Dehydration [Unknown]
  - Coma [Unknown]
  - Renal failure [Unknown]

NARRATIVE: CASE EVENT DATE: 2015
